FAERS Safety Report 5145560-0 (Version None)
Quarter: 2006Q4

REPORT INFORMATION
  Report Type: 
  Country: None (occurrence: None)
  Receive Date: 20061101
  Receipt Date: 20061024
  Transmission Date: 20070319
  Serious: Yes (Life-Threatening, Hospitalization)
  Sender: FDA-Public Use
  Company Number: 163-21880-06080970

PATIENT
  Age: 67 Year
  Sex: Male

DRUGS (21)
  1. REVLIMID [Suspect]
     Indication: MULTIPLE MYELOMA
     Dosage: 10 MG, 21 DAYS ON 7 DAYS OFF, ORAL; SEE IMAGE
     Route: 048
     Dates: start: 20060807, end: 20060821
  2. LASIX [Concomitant]
  3. HYPERTENSIVE MEDICATION (ANTIHYPERTENSIVES) [Concomitant]
  4. AMBIEN [Concomitant]
  5. POTASSIUM (POTASSIUM) [Concomitant]
  6. DEXAMETHASONE TAB [Concomitant]
  7. GLYBURIDE [Concomitant]
  8. FOSINOPRIL SODIUM [Concomitant]
  9. COREG [Concomitant]
  10. ATACAND [Concomitant]
  11. ASPIRIN [Concomitant]
  12. LIPITOR [Concomitant]
  13. LANTUS [Concomitant]
  14. MONOPRIL [Concomitant]
  15. BENADRYL (CLONALIN) [Concomitant]
  16. POTASSIUM (POTASSIUM) [Concomitant]
  17. NITROQUICK (GLYCERYL TRINITRATE) [Concomitant]
  18. PROTONIX [Concomitant]
  19. ALTACE [Concomitant]
  20. NAPROXEN [Concomitant]
  21. HYDROCODONE (HYDROCODONE) [Concomitant]

REACTIONS (5)
  - ASTHENIA [None]
  - HYPOGLYCAEMIA [None]
  - HYPOTENSION [None]
  - HYPOVOLAEMIA [None]
  - VENTRICULAR TACHYCARDIA [None]
